FAERS Safety Report 4317304-3 (Version None)
Quarter: 2004Q1

REPORT INFORMATION
  Report Type: 
  Country: None (occurrence: None)
  Receive Date: 20040304
  Receipt Date: 20040219
  Transmission Date: 20041129
  Serious: Yes (Other)
  Sender: FDA-Public Use
  Company Number: 20029866-C598250-1

PATIENT
  Sex: Male
  Weight: 90.7194 kg

DRUGS (3)
  1. ANTICOAGULANT CITRATE DEXTROSE SOLUTION A [Suspect]
     Indication: APHERESIS
     Dates: start: 20040112
  2. COBE TRIMA APHERESIS DEVICE [Concomitant]
  3. ASPIRIN [Concomitant]

REACTIONS (3)
  - CHEST PAIN [None]
  - DYSPNOEA [None]
  - PALPITATIONS [None]
